FAERS Safety Report 10261455 (Version 1)
Quarter: 2014Q2

REPORT INFORMATION
  Report Type: Report from Study
  Country: IT (occurrence: IT)
  Receive Date: 20140626
  Receipt Date: 20140626
  Transmission Date: 20141212
  Serious: Yes (Other)
  Sender: FDA-Public Use
  Company Number: IT-B.I. PHARMACEUTICALS,INC./RIDGEFIELD-2014-BI-28688GD

PATIENT
  Age: 15 Year
  Sex: Male
  Weight: 65 kg

DRUGS (3)
  1. DIPYRIDAMOLE [Suspect]
     Indication: ANTIPLATELET THERAPY
     Dosage: 3 TO 4 MG/KG/DAY
     Route: 065
  2. WARFARIN [Suspect]
     Indication: ANTICOAGULANT THERAPY
     Route: 065
  3. ACETYLSALICYLIC ACID [Suspect]
     Indication: ANTIPLATELET THERAPY
     Dosage: 0.5 TO 1 MG/KG/DAY
     Route: 065

REACTIONS (2)
  - Localised infection [Unknown]
  - Epistaxis [Unknown]
